FAERS Safety Report 9237964 (Version 2)
Quarter: 2013Q2

REPORT INFORMATION
  Report Type: Spontaneous
  Country: US (occurrence: None)
  Receive Date: 20121106
  Receipt Date: 20130503
  Transmission Date: 20140414
  Serious: Yes (Hospitalization)
  Sender: FDA-Public Use
  Company Number: 1000037040

PATIENT
  Age: 68 Year
  Sex: Male

DRUGS (5)
  1. DALIRESP [Suspect]
     Indication: CHRONIC OBSTRUCTIVE PULMONARY DISEASE
     Route: 048
     Dates: end: 20120624
  2. DALIRESP [Suspect]
     Indication: CHRONIC OBSTRUCTIVE PULMONARY DISEASE
     Route: 048
  3. ADVAIR(SERETIDE)(SERETIDE) [Concomitant]
  4. SPIRIVA(TIOTROPIUM BROMIDE) [Concomitant]
  5. PREDNISONE(PREDNISONE) [Concomitant]

REACTIONS (2)
  - Chronic obstructive pulmonary disease [None]
  - Pruritus [None]
